FAERS Safety Report 18343776 (Version 1)
Quarter: 2020Q4

REPORT INFORMATION
  Report Type: Spontaneous
  Country: LV (occurrence: LV)
  Receive Date: 20201005
  Receipt Date: 20201005
  Transmission Date: 20210114
  Serious: Yes (Hospitalization, Other)
  Sender: FDA-Public Use
  Company Number: LV-PFIZER INC-2020378218

PATIENT
  Sex: Male
  Weight: 3.17 kg

DRUGS (11)
  1. METHYLPREDNISOLONE. [Suspect]
     Active Substance: METHYLPREDNISOLONE
     Dosage: 250 MG
     Route: 064
     Dates: start: 20191214
  2. DOXORUBICIN [Suspect]
     Active Substance: DOXORUBICIN
     Indication: ACUTE PROMYELOCYTIC LEUKAEMIA
     Dosage: UNK, DOXORUBICIN/CYTARABINE (3+7)
     Route: 064
     Dates: start: 20191226, end: 20191231
  3. FILGRASTIM [Suspect]
     Active Substance: FILGRASTIM
     Indication: NEUTROPENIA
     Dosage: UNK
     Route: 064
  4. ALLOPURINOL. [Suspect]
     Active Substance: ALLOPURINOL
     Dosage: UNK
     Route: 064
     Dates: start: 20191218
  5. TRETINOIN. [Suspect]
     Active Substance: TRETINOIN
     Indication: ACUTE PROMYELOCYTIC LEUKAEMIA
     Dosage: 80 MG DAILY
     Route: 064
     Dates: start: 20191218, end: 20200120
  6. TRETINOIN. [Suspect]
     Active Substance: TRETINOIN
     Dosage: 40 MG, 1X/DAY, DOSE REDUCED BY 50%
     Route: 064
     Dates: start: 20200121, end: 20200316
  7. DEXAMETHASONE. [Suspect]
     Active Substance: DEXAMETHASONE
     Indication: DIFFERENTIATION SYNDROME
     Dosage: 10 MG
     Route: 064
     Dates: start: 20191218
  8. METHYLPREDNISOLONE. [Suspect]
     Active Substance: METHYLPREDNISOLONE
     Dosage: 500 MG
     Route: 064
     Dates: start: 20191209
  9. AMPHOTERICIN [Suspect]
     Active Substance: AMPHOTERICIN B
     Dosage: UNK
     Route: 064
  10. TRIMETHOPRIM SULFAMETHOXAZOLE [Suspect]
     Active Substance: SULFAMETHOXAZOLE\TRIMETHOPRIM
     Indication: PROPHYLAXIS
     Dosage: UNK, IN PROPHYLACTIC DOSE
     Route: 064
     Dates: start: 20191218
  11. CYTARABINE. [Suspect]
     Active Substance: CYTARABINE
     Indication: ACUTE PROMYELOCYTIC LEUKAEMIA
     Dosage: UNK, DOXORUBICIN/CYTARABINE (3+7)
     Route: 064
     Dates: start: 20191226, end: 20191231

REACTIONS (2)
  - Maternal exposure during pregnancy [Unknown]
  - Intrauterine infection [Recovered/Resolved]

NARRATIVE: CASE EVENT DATE: 20200424
